FAERS Safety Report 18275292 (Version 4)
Quarter: 2021Q1

REPORT INFORMATION
  Report Type: Spontaneous
  Country: US (occurrence: US)
  Receive Date: 20200917
  Receipt Date: 20210219
  Transmission Date: 20210419
  Serious: No
  Sender: FDA-Public Use
  Company Number: US-BRISTOL-MYERS SQUIBB COMPANY-BMS-2020-075912

PATIENT
  Sex: Male

DRUGS (3)
  1. OFEV [Suspect]
     Active Substance: NINTEDANIB
     Indication: PRODUCT USED FOR UNKNOWN INDICATION
     Dosage: 150 MILLIGRAM, BID
     Route: 065
  2. OFEV [Suspect]
     Active Substance: NINTEDANIB
     Dosage: 100 MILLIGRAM, BID
     Route: 065
  3. ORENCIA [Suspect]
     Active Substance: ABATACEPT
     Indication: RHEUMATOID ARTHRITIS
     Dosage: 125 MILLIGRAM, QWK
     Route: 058
     Dates: start: 20200127

REACTIONS (8)
  - Hypertension [Unknown]
  - Abdominal pain upper [Unknown]
  - Weight decreased [Unknown]
  - Flatulence [Unknown]
  - Abdominal discomfort [Unknown]
  - Constipation [Unknown]
  - Asthenia [Unknown]
  - Diarrhoea [Unknown]
